FAERS Safety Report 5954227-8 (Version None)
Quarter: 2008Q4

REPORT INFORMATION
  Report Type: 
  Country: None (occurrence: None)
  Receive Date: 20081113
  Receipt Date: 20081103
  Transmission Date: 20090506
  Serious: Yes (Other)
  Sender: FDA-Public Use
  Company Number: 2008-04169

PATIENT
  Age: 58 Year
  Sex: Female

DRUGS (3)
  1. VELCADE [Suspect]
     Indication: MULTIPLE MYELOMA
     Dosage: 1.3 MG/M2, UNK, INTRAVENOUS, 1 MG/M2, UNK, INTRAVENOUS
     Route: 042
  2. DEXAMETHASONE TAB [Suspect]
     Indication: MULTIPLE MYELOMA
     Dosage: UNK, UNK, UNKNOWN
  3. KETODERM [Concomitant]

REACTIONS (2)
  - NEUROPATHY PERIPHERAL [None]
  - SKIN DEPIGMENTATION [None]
